FAERS Safety Report 5114504-X (Version None)
Quarter: 2006Q3

REPORT INFORMATION
  Report Type: 
  Country: None (occurrence: None)
  Receive Date: 20060926
  Receipt Date: 20060914
  Transmission Date: 20061208
  Serious: Yes (Congenital Anomaly)
  Sender: FDA-Public Use
  Company Number: SE-JNJFOC-20060904849

PATIENT
  Sex: Male
  Weight: 3.76 kg

DRUGS (3)
  1. IPREN 400 MG [Suspect]
     Indication: DRUG USE FOR UNKNOWN INDICATION
     Dosage: MOTHER TREATED WITH 400MG TID FOR PAIN RELIEF DURING HER FIRST TRIMESTER, TRANSPLACENTAL (ROUTE)
     Route: 064
  2. LEVAXIN [Concomitant]
     Route: 064
  3. PROGESTERONE [Concomitant]
     Route: 064

REACTIONS (2)
  - DRUG EXPOSURE DURING PREGNANCY [None]
  - LIMB HYPOPLASIA CONGENITAL [None]
